FAERS Safety Report 6429108-6 (Version None)
Quarter: 2009Q4

REPORT INFORMATION
  Report Type: 
  Country: None (occurrence: None)
  Receive Date: 20091105
  Receipt Date: 20091023
  Transmission Date: 20100525
  Serious: Yes (Life-Threatening, Hospitalization, Other)
  Sender: FDA-Public Use
  Company Number: DE-ELI_LILLY_AND_COMPANY-DE200910000059

PATIENT
  Age: 71 Year
  Sex: Female
  Weight: 125 kg

DRUGS (15)
  1. EFFIENT [Suspect]
     Dosage: 10 MG, UNK
  2. SERTRALIN [Concomitant]
     Dosage: 5 D/F, DAILY (1/D)
  3. SIMVASTATIN [Concomitant]
     Dosage: UNK, DAILY (1/D)
  4. SIOFOR [Concomitant]
     Dosage: UNK, 2/D
  5. AMARYL [Concomitant]
     Dosage: UNK, DAILY (1/D)
  6. DIGIMERCK [Concomitant]
     Indication: ATRIAL FIBRILLATION
     Dosage: 0.07 D/F, DAILY (1/D)
  7. RAMIPRIL [Concomitant]
     Dosage: 5 D/F, DAILY (1/D)
  8. ASPIRIN [Concomitant]
     Dosage: 100 D/F, DAILY (1/D)
  9. EPLERENONE [Concomitant]
     Dosage: 25 D/F, DAILY (1/D)
  10. AMIODARONE HCL [Concomitant]
     Indication: ATRIAL FIBRILLATION
     Dosage: 100 D/F, DAILY (1/D)
  11. LANTUS [Concomitant]
     Dosage: 6 IU, UNK
  12. TORREM [Concomitant]
     Dosage: 10 D/F, 2/D
  13. ATACAND HCT [Concomitant]
     Dosage: 16 D/F, DAILY (1/D)
  14. PANTOPRAZOLE SODIUM [Concomitant]
     Dosage: 20 D/F, DAILY (1/D)
  15. ADALAT [Concomitant]
     Dosage: 10 D/F, UNKNOWN

REACTIONS (3)
  - HYPERTENSION [None]
  - LEFT VENTRICULAR FAILURE [None]
  - RENAL FAILURE [None]
